FAERS Safety Report 15892915 (Version 1)
Quarter: 2019Q1

REPORT INFORMATION
  Report Type: Report from Study
  Country: US (occurrence: US)
  Receive Date: 20190130
  Receipt Date: 20190130
  Transmission Date: 20190417
  Serious: No
  Sender: FDA-Public Use
  Company Number: US-EXELIXIS-CABO-18016967

PATIENT
  Age: 80 Year
  Sex: Female

DRUGS (2)
  1. CABOMETYX [Suspect]
     Active Substance: CABOZANTINIB S-MALATE
     Indication: CARCINOID TUMOUR
     Dosage: 60 MG, QD
     Route: 048
     Dates: start: 20181016
  2. INLYTA [Concomitant]
     Active Substance: AXITINIB

REACTIONS (3)
  - Back injury [Unknown]
  - Hand-foot-and-mouth disease [Not Recovered/Not Resolved]
  - Fall [Unknown]

NARRATIVE: CASE EVENT DATE: 2018
